FAERS Safety Report 5567594-4 (Version None)
Quarter: 2007Q4

REPORT INFORMATION
  Report Type: 
  Country: None (occurrence: None)
  Receive Date: 20071219
  Receipt Date: 20071207
  Transmission Date: 20080405
  Serious: Yes (Other)
  Sender: FDA-Public Use
  Company Number: GB-PFIZER INC-2007103324

PATIENT
  Sex: Male

DRUGS (3)
  1. EPANUTIN SUSPENSION [Suspect]
  2. CO-CODAMOL [Interacting]
     Indication: LIMB INJURY
  3. PETHIDINE [Interacting]
     Indication: LIMB INJURY

REACTIONS (4)
  - CONVULSION [None]
  - DRUG INTERACTION [None]
  - LIMB INJURY [None]
  - LOSS OF CONSCIOUSNESS [None]
